FAERS Safety Report 5422264-8 (Version None)
Quarter: 2007Q3

REPORT INFORMATION
  Report Type: 
  Country: None (occurrence: None)
  Receive Date: 20070822
  Receipt Date: 20070817
  Transmission Date: 20080115
  Serious: Yes (Other)
  Sender: FDA-Public Use
  Company Number: JP-AVENTIS-200712155JP

PATIENT
  Sex: Female

DRUGS (2)
  1. AMARYL [Suspect]
     Route: 048
  2. ACTOS [Concomitant]

REACTIONS (1)
  - AMENORRHOEA [None]
